FAERS Safety Report 4532992-4 (Version None)
Quarter: 2005Q1

REPORT INFORMATION
  Report Type: 
  Country: None (occurrence: None)
  Receive Date: 20041206
  Receipt Date: 20041015
  Transmission Date: 20050727
  Serious: No
  Sender: FDA-Public Use
  Company Number: USA041081230

PATIENT
  Age: 57 Year
  Sex: Female
  Weight: 114 kg

DRUGS (5)
  1. CYMBALTA [Suspect]
     Indication: DEPRESSION
     Dosage: 30 MG/1 DAY
     Dates: start: 20041008, end: 20041012
  2. NEXIUM [Concomitant]
  3. SYNTHROID [Concomitant]
  4. BEXTRA [Concomitant]
  5. LIPITOR [Concomitant]

REACTIONS (1)
  - DRY MOUTH [None]
